FAERS Safety Report 8784420 (Version 1)
Quarter: 2012Q4

REPORT INFORMATION
  Report Type: 
  Country: US (occurrence: US)
  Receive Date: 20120913
  Receipt Date: 20120913
  Transmission Date: 20130627
  Serious: No
  Sender: FDA-Public Use
  Company Number: US-PFIZER INC-2012220454

PATIENT
  Sex: Female

DRUGS (3)
  1. LEVONORGESTREL/ETHINYL ESTRADIOL [Suspect]
     Dosage: UNK
  2. YAZ [Suspect]
     Dosage: UNK
  3. ORTHO-NOVUM 1/50 28 [Suspect]
     Dosage: UNK

REACTIONS (4)
  - Migraine [Unknown]
  - Influenza like illness [Unknown]
  - Dysmenorrhoea [Unknown]
  - Feeling abnormal [Unknown]
